FAERS Safety Report 8226110-9 (Version None)
Quarter: 2012Q1

REPORT INFORMATION
  Report Type: 
  Country: None (occurrence: None)
  Receive Date: 20120319
  Receipt Date: 20120314
  Transmission Date: 20120608
  Serious: Yes (Other)
  Sender: FDA-Public Use
  Company Number: GER/UKI/12/0022928

PATIENT
  Age: 80 Year
  Sex: Male

DRUGS (8)
  1. DOUBLEBASE (HYDROMOL /00906601/) [Concomitant]
  2. WARFARIN SODIUM [Concomitant]
  3. TAMSULOSIN HCL [Concomitant]
  4. FINASTERIDE [Concomitant]
  5. RAMIPRIL [Suspect]
     Indication: HYPERTENSION
     Dosage: 1.25 MG, 1 IN 1 D, ORAL
     Route: 048
     Dates: start: 20120124
  6. LEVOTHYROXINE SODIUM [Concomitant]
  7. LATANOPROST [Concomitant]
  8. LAMOTRIGINE [Suspect]
     Indication: EPILEPSY
     Dosage: 25 MG, 1 IN 1 D

REACTIONS (3)
  - WHITE BLOOD CELL COUNT DECREASED [None]
  - HAEMOGLOBIN DECREASED [None]
  - MYELODYSPLASTIC SYNDROME [None]
